FAERS Safety Report 16344899 (Version 4)
Quarter: 2019Q3

REPORT INFORMATION
  Report Type: Report from Study
  Country: None (occurrence: US)
  Receive Date: 20190522
  Receipt Date: 20190825
  Transmission Date: 20191004
  Serious: Yes (Other)
  Sender: FDA-Public Use
  Company Number: US-ABBVIE-19K-163-2790538-00

PATIENT
  Age: 53 Year
  Sex: Male

DRUGS (1)
  1. HUMIRA [Suspect]
     Active Substance: ADALIMUMAB
     Indication: ANKYLOSING SPONDYLITIS
     Route: 058
     Dates: start: 20190516

REACTIONS (15)
  - Tinnitus [Unknown]
  - Pain [Unknown]
  - Back pain [Recovering/Resolving]
  - Hypoacusis [Unknown]
  - Fatigue [Not Recovered/Not Resolved]
  - Pruritus [Unknown]
  - Neck pain [Recovering/Resolving]
  - Musculoskeletal stiffness [Recovered/Resolved]
  - Dysstasia [Unknown]
  - Joint range of motion decreased [Recovering/Resolving]
  - Pain in extremity [Unknown]
  - Loss of personal independence in daily activities [Not Recovered/Not Resolved]
  - Mobility decreased [Not Recovered/Not Resolved]
  - Cough [Unknown]
  - Arthralgia [Recovering/Resolving]

NARRATIVE: CASE EVENT DATE: 2019
